FAERS Safety Report 26130559 (Version 1)
Quarter: 2025Q4

REPORT INFORMATION
  Report Type: Report from Study
  Country: US (occurrence: US)
  Receive Date: 20251208
  Receipt Date: 20251208
  Transmission Date: 20260118
  Serious: Yes (Hospitalization)
  Sender: ABBVIE
  Company Number: US-ABBVIE-6563786

PATIENT
  Age: 63 Year
  Sex: Male
  Weight: 81.1 kg

DRUGS (1)
  1. VENCLEXTA [Suspect]
     Active Substance: VENETOCLAX
     Indication: Myeloproliferative neoplasm
     Dosage: TAKE 1 TABLET (100 MG TOTAL) DAILY ON DAYS 1-14 OF A 28-DAY CYCLE.?STRENGTH NAME: 100 MG / 1 EA
     Route: 048

REACTIONS (2)
  - Hospitalisation [Unknown]
  - Off label use [Unknown]

NARRATIVE: CASE EVENT DATE: 20251202
